FAERS Safety Report 9353508 (Version 1)
Quarter: 2013Q2

REPORT INFORMATION
  Report Type: Spontaneous
  Country: US (occurrence: US)
  Receive Date: 20130618
  Receipt Date: 20130618
  Transmission Date: 20140414
  Serious: Yes (Other)
  Sender: FDA-Public Use
  Company Number: US-JNJFOC-20130607003

PATIENT
  Age: 7 Decade
  Sex: Female

DRUGS (2)
  1. REMICADE [Suspect]
     Indication: RHEUMATOID ARTHRITIS
     Dosage: DURING INFUSION AT WEEK 0 AND WEEK 2
     Route: 042
     Dates: start: 201305
  2. REMICADE [Suspect]
     Indication: RHEUMATOID ARTHRITIS
     Route: 042

REACTIONS (3)
  - Surgery [Unknown]
  - Back pain [Recovered/Resolved]
  - Infusion related reaction [Recovered/Resolved]
